FAERS Safety Report 7979077-2 (Version None)
Quarter: 2011Q4

REPORT INFORMATION
  Report Type: 
  Country: None (occurrence: None)
  Receive Date: 20111205
  Receipt Date: 20111122
  Transmission Date: 20120403
  Serious: Yes (Death, Other)
  Sender: FDA-Public Use
  Company Number: 2011MA016754

PATIENT
  Age: 74 Year
  Sex: Male
  Weight: 78.4723 kg

DRUGS (27)
  1. ALLOPURINOL [Concomitant]
  2. AVELOX [Concomitant]
  3. FEXOFENADINE [Concomitant]
  4. AMARYL [Concomitant]
  5. DIGOXIN [Suspect]
     Dosage: .25 MG;QD;PO
     Route: 048
     Dates: start: 20060131, end: 20080315
  6. INSPRA [Concomitant]
  7. LIPITOR [Concomitant]
  8. TOPROL-XL [Concomitant]
  9. SPIRIVA [Concomitant]
  10. ZANTAC [Concomitant]
  11. AVODART [Concomitant]
  12. PROAIR HFA [Concomitant]
  13. PROSCAR [Concomitant]
  14. CLINDAMYCIN [Concomitant]
  15. LEVAQUIN [Concomitant]
  16. NITROLINGUAL [Concomitant]
  17. HYDROCODONE BITARTRATE [Concomitant]
  18. FLOMAX [Concomitant]
  19. FUROSEMIDE [Concomitant]
  20. MELATONIN [Concomitant]
  21. BENAZEPRIL HYDROCHLORIDE [Concomitant]
  22. FACTIVE [Concomitant]
  23. ADVAIR DISKUS 100/50 [Concomitant]
  24. ALBUTEROL [Concomitant]
  25. CIPROFLOXACIN [Concomitant]
  26. ACETAMINOPHEN [Concomitant]
  27. SOTALOL HCL [Concomitant]

REACTIONS (45)
  - HAEMORRHAGIC ANAEMIA [None]
  - BLADDER DILATATION [None]
  - TOXICITY TO VARIOUS AGENTS [None]
  - HYPOTENSION [None]
  - CHRONIC OBSTRUCTIVE PULMONARY DISEASE [None]
  - DIABETES MELLITUS INADEQUATE CONTROL [None]
  - INSOMNIA [None]
  - CARDIAC FAILURE CONGESTIVE [None]
  - HYPERTENSION [None]
  - DIABETIC NEUROPATHY [None]
  - NAUSEA [None]
  - PYURIA [None]
  - GASTROOESOPHAGEAL REFLUX DISEASE [None]
  - MUSCLE INJURY [None]
  - HYPOGLYCAEMIA [None]
  - TOOTH EXTRACTION [None]
  - ECONOMIC PROBLEM [None]
  - RESPIRATORY FAILURE [None]
  - GASTROINTESTINAL HAEMORRHAGE [None]
  - URINARY HESITATION [None]
  - DYSURIA [None]
  - HEADACHE [None]
  - RENAL FAILURE [None]
  - ORTHOSTATIC HYPOTENSION [None]
  - MALAISE [None]
  - VISUAL IMPAIRMENT [None]
  - HAEMOPTYSIS [None]
  - CONTUSION [None]
  - NASOPHARYNGITIS [None]
  - HEPATIC ENZYME INCREASED [None]
  - PROSTATISM [None]
  - DIZZINESS [None]
  - FATIGUE [None]
  - ASTHENIA [None]
  - POLLAKIURIA [None]
  - LYMPHADENOPATHY [None]
  - CONDITION AGGRAVATED [None]
  - NOCTURIA [None]
  - MUSCLE SPASMS [None]
  - URINARY RETENTION [None]
  - DECREASED APPETITE [None]
  - DIARRHOEA [None]
  - PAIN IN EXTREMITY [None]
  - AMNESIA [None]
  - DEHYDRATION [None]
